FAERS Safety Report 8194842-7 (Version None)
Quarter: 2012Q1

REPORT INFORMATION
  Report Type: 
  Country: None (occurrence: None)
  Receive Date: 20120308
  Receipt Date: 20110429
  Transmission Date: 20120608
  Serious: No
  Sender: FDA-Public Use
  Company Number: US-GLAXOSMITHKLINE-A0925140A

PATIENT
  Age: 50 Year
  Sex: Female

DRUGS (2)
  1. NICORETTE [Suspect]
     Indication: EX-TOBACCO USER
     Route: 048
     Dates: start: 20060101
  2. ANTIBIOTIC [Concomitant]

REACTIONS (2)
  - CHEST DISCOMFORT [None]
  - NICOTINE DEPENDENCE [None]
